FAERS Safety Report 7380144-5 (Version None)
Quarter: 2011Q1

REPORT INFORMATION
  Report Type: 
  Country: None (occurrence: None)
  Receive Date: 20110329
  Receipt Date: 20100902
  Transmission Date: 20110831
  Serious: No
  Sender: FDA-Public Use
  Company Number: US-MYLANLABS-2010S1014262

PATIENT
  Sex: Female

DRUGS (4)
  1. EXCEDRIN (MIGRAINE) [Concomitant]
  2. ESTRADIOL [Suspect]
     Indication: PREMATURE MENOPAUSE
     Route: 062
  3. FOSAMAX [Concomitant]
  4. BENADRYL [Concomitant]

REACTIONS (5)
  - APPLICATION SITE INFLAMMATION [None]
  - APPLICATION SITE DISCOMFORT [None]
  - APPLICATION SITE VESICLES [None]
  - APPLICATION SITE IRRITATION [None]
  - DRUG EFFECT DECREASED [None]
